FAERS Safety Report 17525172 (Version 1)
Quarter: 2020Q1

REPORT INFORMATION
  Report Type: Spontaneous
  Country: NP (occurrence: NP)
  Receive Date: 20200311
  Receipt Date: 20200311
  Transmission Date: 20200409
  Serious: Yes (Hospitalization, Other)
  Sender: FDA-Public Use
  Company Number: NP-ALVOGEN-2020-ALVOGEN-107723

PATIENT
  Age: 29 Year
  Sex: Male

DRUGS (1)
  1. TRAZODONE [Suspect]
     Active Substance: TRAZODONE HYDROCHLORIDE
     Indication: SUICIDAL IDEATION
     Dosage: 25 TABLETS OF 50 MG TRAZODONE

REACTIONS (2)
  - Prinzmetal angina [Recovered/Resolved]
  - Overdose [Unknown]
